FAERS Safety Report 8170826-X (Version None)
Quarter: 2012Q1

REPORT INFORMATION
  Report Type: 
  Country: None (occurrence: None)
  Receive Date: 20120106
  Receipt Date: 20110128
  Transmission Date: 20120608
  Serious: Yes (Hospitalization)
  Sender: FDA-Public Use
  Company Number: US-005770

PATIENT
  Age: 56 Year
  Sex: Female
  Weight: 90.9 kg

DRUGS (16)
  1. TRICOR [Concomitant]
  2. CLEAR LAX [Concomitant]
  3. MULTIHANCE [Suspect]
     Indication: NUCLEAR MAGNETIC RESONANCE IMAGING
     Dosage: 10ML ONCE INTRAVENOUS (NOT OTHERWISE SPECIFIED)
     Route: 042
     Dates: start: 20101223, end: 20101223
  4. MULTIHANCE [Suspect]
     Indication: PITUITARY TUMOUR BENIGN
     Dosage: 10ML ONCE INTRAVENOUS (NOT OTHERWISE SPECIFIED)
     Route: 042
     Dates: start: 20101223, end: 20101223
  5. LOVENOX [Concomitant]
  6. PREDNISONE TAB [Concomitant]
  7. HYDROCHLOROTHIAZIDE [Concomitant]
  8. PEPCID [Concomitant]
  9. OMEPRAZOLE [Concomitant]
  10. LISINOPRIL [Concomitant]
  11. VAGIFEM [Concomitant]
  12. DDAVP [Concomitant]
  13. PROTONIX [Concomitant]
  14. NEXIUM [Concomitant]
  15. LOVAZA [Concomitant]
  16. ROCEPHIN [Concomitant]

REACTIONS (3)
  - BURNING SENSATION [None]
  - THROAT IRRITATION [None]
  - CHEST PAIN [None]
